FAERS Safety Report 5354278-0 (Version None)
Quarter: 2007Q2

REPORT INFORMATION
  Report Type: 
  Country: None (occurrence: None)
  Receive Date: 20070612
  Receipt Date: 20070601
  Transmission Date: 20071010
  Serious: Yes (Hospitalization)
  Sender: FDA-Public Use
  Company Number: SE-JNJFOC-20070601037

PATIENT
  Age: 62 Year
  Sex: Male

DRUGS (3)
  1. REMICADE [Suspect]
     Indication: PSORIASIS
     Route: 042
  2. ASACOL [Concomitant]
  3. AZATHIOPRINE SODIUM [Concomitant]

REACTIONS (1)
  - LIP AND/OR ORAL CAVITY CANCER [None]
